FAERS Safety Report 20557866 (Version 1)
Quarter: 2022Q1

REPORT INFORMATION
  Report Type: Spontaneous
  Country: CN (occurrence: CN)
  Receive Date: 20220307
  Receipt Date: 20220307
  Transmission Date: 20220423
  Serious: Yes (Other)
  Sender: FDA-Public Use
  Company Number: CN-BAXTER-2022BAX004605

PATIENT
  Age: 61 Year
  Sex: Female

DRUGS (4)
  1. CYCLOPHOSPHAMIDE [Suspect]
     Active Substance: CYCLOPHOSPHAMIDE
     Indication: Breast cancer
     Dosage: CYCLOPHOSPHAMIDE FOR INJECTION 0.8G DILUTED WITH 0.9% SODIUM CHLORIDE INJECTION 500ML QD
     Route: 041
     Dates: start: 20220217, end: 20220217
  2. SODIUM CHLORIDE [Suspect]
     Active Substance: SODIUM CHLORIDE
     Indication: Medication dilution
     Dosage: CYCLOPHOSPHAMIDE FOR INJECTION 0.8G DILUTED WITH 0.9% SODIUM CHLORIDE INJECTION 500ML QD
     Route: 041
     Dates: start: 20220217, end: 20220217
  3. DEXTROSE [Suspect]
     Active Substance: DEXTROSE
     Indication: Medication dilution
     Dosage: DOCETAXEL INJECTION 100 MG DILUTED WITH 5% GLUCOSE INJECTION 250ML QD
     Route: 041
     Dates: start: 20220216, end: 20220216
  4. DOCETAXEL [Suspect]
     Active Substance: DOCETAXEL
     Indication: Breast cancer
     Dosage: DOCETAXEL INJECTION 100 MG DILUTED WITH 5% GLUCOSE INJECTION 250ML QD
     Route: 041
     Dates: start: 20220216, end: 20220216

REACTIONS (1)
  - Myelosuppression [Recovered/Resolved]

NARRATIVE: CASE EVENT DATE: 20220219
